FAERS Safety Report 6545648-3 (Version None)
Quarter: 2010Q1

REPORT INFORMATION
  Report Type: 
  Country: None (occurrence: None)
  Receive Date: 20100121
  Receipt Date: 20100112
  Transmission Date: 20100710
  Serious: Yes (Other)
  Sender: FDA-Public Use
  Company Number: GB-PFIZER INC-2007065654

PATIENT
  Age: 59 Year
  Sex: Female

DRUGS (6)
  1. METHYLPREDNISOLONE AND METHYLPREDNISOLONE ACETATE AND METHYLPREDNISOLO [Suspect]
     Indication: INTESTINAL T-CELL LYMPHOMA STAGE I
     Dosage: CYCLIC
     Dates: start: 20010601, end: 20050301
  2. METHYLPREDNISOLONE AND METHYLPREDNISOLONE ACETATE AND METHYLPREDNISOLO [Suspect]
     Indication: NON-HODGKIN'S LYMPHOMA
  3. CISPLATIN [Suspect]
     Indication: NON-HODGKIN'S LYMPHOMA
     Dosage: CYCLIC
     Dates: start: 20010601, end: 20050301
  4. CISPLATIN [Suspect]
     Indication: INTESTINAL T-CELL LYMPHOMA STAGE I
  5. GEMCITABINE [Suspect]
     Indication: NON-HODGKIN'S LYMPHOMA
     Dosage: CYCLIC
     Dates: start: 20010601, end: 20050301
  6. GEMCITABINE [Suspect]
     Indication: INTESTINAL T-CELL LYMPHOMA STAGE I

REACTIONS (2)
  - ANAEMIA [None]
  - NEUTROPENIC SEPSIS [None]
